FAERS Safety Report 8942317 (Version 1)
Quarter: 2012Q4

REPORT INFORMATION
  Report Type: Spontaneous
  Country: US (occurrence: None)
  Receive Date: 20121123
  Receipt Date: 20121123
  Transmission Date: 20130627
  Serious: Yes (Other)
  Sender: FDA-Public Use
  Company Number: 2012SUN00280

PATIENT
  Age: 52 Year
  Sex: Female

DRUGS (1)
  1. LITHIUM CARBONATE [Suspect]
     Indication: BIPOLAR DISORDER
     Route: 048

REACTIONS (4)
  - Renal cyst [None]
  - Blood creatinine increased [None]
  - Polydipsia [None]
  - Polyuria [None]
